FAERS Safety Report 4931165-0 (Version None)
Quarter: 2006Q1

REPORT INFORMATION
  Report Type: 
  Country: None (occurrence: None)
  Receive Date: 20060302
  Receipt Date: 20051013
  Transmission Date: 20060701
  Serious: Yes (Hospitalization)
  Sender: FDA-Public Use
  Company Number: US-MERCK-0510USA07062

PATIENT
  Age: 75 Year
  Sex: Female
  Weight: 68 kg

DRUGS (7)
  1. VIOXX [Suspect]
     Indication: BACK PAIN
     Route: 048
     Dates: end: 20030801
  2. VIOXX [Suspect]
     Route: 048
     Dates: start: 20030801, end: 20040901
  3. VIOXX [Suspect]
     Indication: ARTHRITIS
     Route: 048
     Dates: end: 20030801
  4. VIOXX [Suspect]
     Route: 048
     Dates: start: 20030801, end: 20040901
  5. VIOXX [Suspect]
     Route: 048
  6. PREMPRO [Concomitant]
     Route: 065
  7. ZYRTEC [Concomitant]
     Route: 065

REACTIONS (14)
  - ACUTE MYOCARDIAL INFARCTION [None]
  - ADRENAL MASS [None]
  - ANGINA UNSTABLE [None]
  - ATRIOVENTRICULAR BLOCK COMPLETE [None]
  - BACK PAIN [None]
  - BLADDER CANCER [None]
  - CATARACT [None]
  - CHEST PAIN [None]
  - CORONARY ARTERY DISEASE [None]
  - CYSTITIS NONINFECTIVE [None]
  - HAEMATURIA [None]
  - HYPERLIPIDAEMIA [None]
  - SPINAL OSTEOARTHRITIS [None]
  - STENT OCCLUSION [None]
